FAERS Safety Report 4399329-5 (Version None)
Quarter: 2004Q3

REPORT INFORMATION
  Report Type: 
  Country: None (occurrence: None)
  Receive Date: 20040712
  Receipt Date: 20040630
  Transmission Date: 20050211
  Serious: Yes (Hospitalization)
  Sender: FDA-Public Use
  Company Number: 2004-117980-NL

PATIENT
  Age: 78 Year
  Sex: Female

DRUGS (1)
  1. MIRTAZAPINE [Suspect]
     Indication: BIPOLAR DISORDER
     Dosage: 45 MG ORAL
     Route: 048
     Dates: end: 20040416

REACTIONS (5)
  - DISORIENTATION [None]
  - HYPOMANIA [None]
  - INAPPROPRIATE ANTIDIURETIC HORMONE SECRETION [None]
  - POLYDIPSIA [None]
  - SOMNOLENCE [None]
